FAERS Safety Report 5653126-9 (Version None)
Quarter: 2008Q1

REPORT INFORMATION
  Report Type: 
  Country: None (occurrence: None)
  Receive Date: 20080306
  Receipt Date: 20080306
  Transmission Date: 20080703
  Serious: Yes (Death, Life-Threatening, Hospitalization)
  Sender: FDA-Public Use
  Company Number: None

PATIENT
  Age: 66 Year
  Sex: Female
  Weight: 49.8957 kg

DRUGS (2)
  1. HEPARIN [Suspect]
     Indication: PULMONARY THROMBOSIS
     Dosage: IV DRIP
     Route: 041
     Dates: start: 20080112, end: 20080114
  2. HEPARIN [Suspect]
     Indication: THROMBOSIS
     Dosage: IV DRIP
     Route: 041
     Dates: start: 20080112, end: 20080114

REACTIONS (2)
  - HAEMORRHAGE [None]
  - THROMBOSIS [None]
